FAERS Safety Report 8128229-X (Version None)
Quarter: 2011Q4

REPORT INFORMATION
  Report Type: 
  Country: None (occurrence: None)
  Receive Date: 20111227
  Receipt Date: 20111012
  Transmission Date: 20120403
  Serious: No
  Sender: FDA-Public Use
  Company Number: PHHY2011US61177

PATIENT
  Age: 67 Year
  Sex: Male
  Weight: 83.9 kg

DRUGS (6)
  1. MIRAPEX [Concomitant]
  2. TEGRETOL [Concomitant]
  3. ZANAFLEX [Concomitant]
  4. VIAGRA [Concomitant]
  5. GILENYA [Suspect]
     Indication: MULTIPLE SCLEROSIS
     Dosage: 0.5 MG, DAILY, ORAL
     Route: 048
     Dates: start: 20110621, end: 20110927
  6. HYDROCHLOROTHIAZIDE [Concomitant]

REACTIONS (9)
  - BLOOD PRESSURE ABNORMAL [None]
  - PHOTOPHOBIA [None]
  - DECREASED APPETITE [None]
  - COUGH [None]
  - RETINAL DISORDER [None]
  - HEART RATE IRREGULAR [None]
  - FATIGUE [None]
  - NAUSEA [None]
  - HEADACHE [None]
